FAERS Safety Report 8817022 (Version 1)
Quarter: 2012Q4

REPORT INFORMATION
  Report Type: Spontaneous
  Country: JP (occurrence: None)
  Receive Date: 20121002
  Receipt Date: 20121002
  Transmission Date: 20130627
  Serious: Yes (Other)
  Sender: FDA-Public Use
  Company Number: 2010JP005127

PATIENT
  Sex: Female

DRUGS (5)
  1. VESICARE [Suspect]
     Route: 048
  2. GASTER [Suspect]
     Route: 048
  3. MYSLEE [Suspect]
     Route: 048
  4. GRAMALIL [Suspect]
     Route: 048
  5. ARICEPT [Concomitant]

REACTIONS (1)
  - Dementia [None]
